FAERS Safety Report 9235992 (Version 1)
Quarter: 2013Q2

REPORT INFORMATION
  Report Type: Spontaneous
  Country: US (occurrence: None)
  Receive Date: 20130416
  Receipt Date: 20130416
  Transmission Date: 20140414
  Serious: Yes (Hospitalization, Other)
  Sender: FDA-Public Use
  Company Number: None

PATIENT
  Age: 81 Year
  Sex: Female
  Weight: 90.72 kg

DRUGS (1)
  1. BRILINTA [Suspect]
     Indication: STENT PLACEMENT
     Route: 048
     Dates: start: 201211, end: 201303

REACTIONS (3)
  - Urinary incontinence [None]
  - Chest pain [None]
  - Dyspnoea [None]
